FAERS Safety Report 14525745 (Version 4)
Quarter: 2018Q2

REPORT INFORMATION
  Report Type: Spontaneous
  Country: AT (occurrence: AT)
  Receive Date: 20180213
  Receipt Date: 20180612
  Transmission Date: 20180711
  Serious: Yes (Other)
  Sender: FDA-Public Use
  Company Number: AT-MYLANLABS-2017M1042986

PATIENT
  Age: 38 Year
  Sex: Male

DRUGS (15)
  1. LEPONEX [Suspect]
     Active Substance: CLOZAPINE
     Indication: PRODUCT USED FOR UNKNOWN INDICATION
     Dosage: UNK
     Route: 048
     Dates: start: 20170109, end: 20170114
  2. LEPONEX [Suspect]
     Active Substance: CLOZAPINE
     Dosage: UNK
     Route: 048
     Dates: start: 20170130, end: 20170215
  3. LEPONEX [Suspect]
     Active Substance: CLOZAPINE
     Dosage: UNK
  4. DEPAKENE [Suspect]
     Active Substance: VALPROIC ACID
     Indication: PRODUCT USED FOR UNKNOWN INDICATION
     Dosage: 1000 MG, UNK
     Dates: start: 20161123, end: 20170112
  5. XEPLION [Suspect]
     Active Substance: PALIPERIDONE PALMITATE
     Indication: SCHIZOPHRENIA
     Dosage: 150 MG, MONTHLY
     Route: 030
  6. XEPLION [Suspect]
     Active Substance: PALIPERIDONE PALMITATE
     Dosage: 100 MG, MONTHLY
     Route: 030
     Dates: start: 20170112
  7. AKINETON [Suspect]
     Active Substance: BIPERIDEN HYDROCHLORIDE
     Indication: PRODUCT USED FOR UNKNOWN INDICATION
     Dosage: 4 MG, UNK
     Route: 048
     Dates: start: 20161207, end: 20170124
  8. LEPONEX [Suspect]
     Active Substance: CLOZAPINE
     Dosage: 125 MG, UNK
     Route: 048
     Dates: start: 20170115, end: 20170124
  9. LEPONEX [Suspect]
     Active Substance: CLOZAPINE
     Dosage: 150 MG, UNK
     Route: 048
     Dates: start: 20170125, end: 20170129
  10. ABILIFY [Suspect]
     Active Substance: ARIPIPRAZOLE
     Dosage: 5 MG, UNK
     Route: 048
     Dates: start: 20161220, end: 20170121
  11. XYZALL [Suspect]
     Active Substance: LEVOCETIRIZINE DIHYDROCHLORIDE
     Indication: PRODUCT USED FOR UNKNOWN INDICATION
     Dosage: 5 MG, UNK
     Route: 048
     Dates: start: 20161219, end: 20170119
  12. DEPAKENE [Suspect]
     Active Substance: VALPROIC ACID
     Dosage: 100 MG, UNK
     Route: 005
  13. LEPONEX [Suspect]
     Active Substance: CLOZAPINE
     Dosage: UNK
  14. ABILIFY [Suspect]
     Active Substance: ARIPIPRAZOLE
     Indication: PRODUCT USED FOR UNKNOWN INDICATION
     Dosage: 15 MG, UNK
     Route: 048
     Dates: start: 20161215
  15. LEPONEX [Suspect]
     Active Substance: CLOZAPINE
     Dosage: 125 MG, UNK

REACTIONS (3)
  - Sedation [Recovered/Resolved]
  - Fatigue [Recovered/Resolved]
  - Parkinsonism [Recovered/Resolved]

NARRATIVE: CASE EVENT DATE: 20170117
